FAERS Safety Report 4773262-9 (Version None)
Quarter: 2005Q3

REPORT INFORMATION
  Report Type: 
  Country: None (occurrence: None)
  Receive Date: 20050916
  Receipt Date: 20050903
  Transmission Date: 20060218
  Serious: Yes (Other)
  Sender: FDA-Public Use
  Company Number: 2005123759

PATIENT
  Sex: Male

DRUGS (2)
  1. UNISOM [Suspect]
     Dosage: 8 TABLETS, ORAL
     Route: 048
     Dates: start: 20050903, end: 20050903
  2. DRAMAMINE [Suspect]
     Dosage: 12 TABLETS, ORAL
     Route: 048
     Dates: start: 20050903, end: 20050903

REACTIONS (2)
  - MULTIPLE DRUG OVERDOSE [None]
  - SPEECH DISORDER [None]
